FAERS Safety Report 25345964 (Version 1)
Quarter: 2025Q2

REPORT INFORMATION
  Report Type: Spontaneous
  Country: CN (occurrence: CN)
  Receive Date: 20250522
  Receipt Date: 20250522
  Transmission Date: 20250717
  Serious: Yes (Hospitalization)
  Sender: SANOFI AVENTIS
  Company Number: CN-SA-2025SA144748

PATIENT
  Age: 75 Year
  Sex: Female
  Weight: 49 kg

DRUGS (2)
  1. CLOPIDOGREL BISULFATE [Suspect]
     Active Substance: CLOPIDOGREL BISULFATE
     Indication: Ischaemic cardiomyopathy
     Dosage: 75 MG, QD
     Route: 048
     Dates: start: 20250502, end: 20250503
  2. INDOBUFEN [Suspect]
     Active Substance: INDOBUFEN
     Dosage: 0.1 G, BID
     Route: 048
     Dates: start: 20250502, end: 20250503

REACTIONS (3)
  - Chest discomfort [Recovered/Resolved]
  - Anaemia [Recovering/Resolving]
  - Haemoglobin decreased [Recovering/Resolving]

NARRATIVE: CASE EVENT DATE: 20250504
